FAERS Safety Report 6501913-7 (Version None)
Quarter: 2009Q4

REPORT INFORMATION
  Report Type: 
  Country: None (occurrence: None)
  Receive Date: 20091216
  Receipt Date: 20091211
  Transmission Date: 20100525
  Serious: Yes (Death)
  Sender: FDA-Public Use
  Company Number: PHHY2009BR55128

PATIENT
  Sex: Male

DRUGS (1)
  1. DIOVAN AMLO [Suspect]
     Indication: HYPERTENSION
     Dosage: UNK
     Route: 048
     Dates: start: 20070101

REACTIONS (3)
  - CONDITION AGGRAVATED [None]
  - EMPHYSEMA [None]
  - FIBROSIS [None]
